FAERS Safety Report 19255083 (Version 1)
Quarter: 2021Q2

REPORT INFORMATION
  Report Type: Spontaneous
  Country: PL (occurrence: PL)
  Receive Date: 20210513
  Receipt Date: 20210513
  Transmission Date: 20210717
  Serious: Yes (Other)
  Sender: FDA-Public Use
  Company Number: PL-PFIZER INC-2021473057

PATIENT
  Age: 64 Year
  Sex: Male
  Weight: 90 kg

DRUGS (1)
  1. SUTENT [Suspect]
     Active Substance: SUNITINIB MALATE
     Indication: RENAL CANCER
     Dosage: 50 MG
     Route: 048

REACTIONS (37)
  - Hyperglycaemia [Unknown]
  - Large intestine polyp [Unknown]
  - Dyspepsia [Unknown]
  - Anisomastia [Unknown]
  - Weight decreased [Unknown]
  - Leukopenia [Unknown]
  - Neutropenia [Unknown]
  - Hyperthyroidism [Unknown]
  - Lymphopenia [Unknown]
  - Arthralgia [Unknown]
  - Tooth extraction [Unknown]
  - Alanine aminotransferase increased [Unknown]
  - Yellow skin [Unknown]
  - Hypothyroidism [Unknown]
  - Erythema [Unknown]
  - Skin lesion [Unknown]
  - Gynaecomastia [Unknown]
  - Weight increased [Unknown]
  - Blood pressure increased [Unknown]
  - Chronic kidney disease [Unknown]
  - Diarrhoea [Unknown]
  - Inflammation [Unknown]
  - Thyroid function test abnormal [Unknown]
  - Thrombocytosis [Unknown]
  - Palmar-plantar erythrodysaesthesia syndrome [Unknown]
  - Lipoma [Unknown]
  - Thrombocytopenia [Unknown]
  - Infection [Unknown]
  - Tremor [Unknown]
  - Hair colour changes [Unknown]
  - Disturbance in attention [Unknown]
  - Memory impairment [Unknown]
  - Anaemia [Unknown]
  - Muscle spasms [Unknown]
  - Visual impairment [Unknown]
  - Aspartate aminotransferase increased [Unknown]
  - Oedema [Unknown]
